FAERS Safety Report 10029110 (Version 1)
Quarter: 2014Q1

REPORT INFORMATION
  Report Type: Spontaneous
  Country: US (occurrence: US)
  Receive Date: 20140321
  Receipt Date: 20140321
  Transmission Date: 20141002
  Serious: Yes (Other)
  Sender: FDA-Public Use
  Company Number: PHHY2014US032155

PATIENT
  Sex: 0

DRUGS (6)
  1. CARBOPLATIN [Suspect]
     Indication: EXTRAOCULAR RETINOBLASTOMA
  2. VINCRISTINE [Suspect]
     Indication: EXTRAOCULAR RETINOBLASTOMA
  3. ETOPOSIDE [Suspect]
     Indication: EXTRAOCULAR RETINOBLASTOMA
  4. TOPOTECAN [Suspect]
     Indication: EXTRAOCULAR RETINOBLASTOMA
  5. THIOTEPA [Suspect]
     Indication: EXTRAOCULAR RETINOBLASTOMA
  6. CYCLOPHOSPHAMIDE [Suspect]
     Indication: EXTRAOCULAR RETINOBLASTOMA

REACTIONS (4)
  - Visual impairment [Unknown]
  - Primary hypothyroidism [Unknown]
  - Ovarian disorder [Unknown]
  - Growth hormone deficiency [Unknown]
